FAERS Safety Report 10956071 (Version 2)
Quarter: 2015Q2

REPORT INFORMATION
  Report Type: Spontaneous
  Country: US (occurrence: US)
  Receive Date: 20150326
  Receipt Date: 20150526
  Transmission Date: 20150821
  Serious: No
  Sender: FDA-Public Use
  Company Number: US-JNJFOC-20130515911

PATIENT
  Age: 57 Year
  Sex: Male
  Weight: 89.81 kg

DRUGS (3)
  1. TRUVADA [Concomitant]
     Active Substance: EMTRICITABINE\TENOFOVIR DISOPROXIL FUMARATE
     Indication: HIV INFECTION
     Route: 065
  2. ISENTRESS [Concomitant]
     Active Substance: RALTEGRAVIR POTASSIUM
     Indication: HIV INFECTION
     Route: 065
     Dates: start: 2013
  3. INTELENCE [Suspect]
     Active Substance: ETRAVIRINE
     Indication: HIV INFECTION
     Route: 048
     Dates: start: 201305

REACTIONS (5)
  - Product difficult to swallow [Not Recovered/Not Resolved]
  - Product physical issue [Unknown]
  - Choking [Not Recovered/Not Resolved]
  - Product size issue [Unknown]
  - Product label issue [Unknown]

NARRATIVE: CASE EVENT DATE: 201305
